FAERS Safety Report 13758762 (Version 2)
Quarter: 2017Q3

REPORT INFORMATION
  Report Type: Spontaneous
  Country: KR (occurrence: KR)
  Receive Date: 20170717
  Receipt Date: 20170731
  Transmission Date: 20171127
  Serious: Yes (Hospitalization)
  Sender: FDA-Public Use
  Company Number: PHHY2017KR102921

PATIENT
  Sex: Male

DRUGS (2)
  1. TASIGNA [Suspect]
     Active Substance: NILOTINIB
     Indication: CHRONIC LEUKAEMIA
     Dosage: UNK, BID
     Route: 048
  2. NIZATIDINE. [Interacting]
     Active Substance: NIZATIDINE
     Indication: EPIDIDYMITIS
     Route: 065

REACTIONS (3)
  - Drug interaction [Unknown]
  - Epididymitis [Not Recovered/Not Resolved]
  - Pancreatitis acute [Unknown]
